FAERS Safety Report 17145416 (Version 1)
Quarter: 2019Q4

REPORT INFORMATION
  Report Type: Spontaneous
  Country: US (occurrence: US)
  Receive Date: 20191119
  Receipt Date: 20191119
  Transmission Date: 20200122
  Serious: Yes (Hospitalization)
  Sender: FDA-Public Use
  Company Number: None

PATIENT
  Age: 72 Year
  Sex: Male
  Weight: 83.46 kg

DRUGS (2)
  1. LISINOPRIL. [Suspect]
     Active Substance: LISINOPRIL
     Indication: HYPERTENSION
     Route: 048
     Dates: start: 20190528, end: 20190611
  2. LENALIDOMIDE [Suspect]
     Active Substance: LENALIDOMIDE
     Indication: PLASMA CELL MYELOMA
     Route: 048
     Dates: start: 20190603

REACTIONS (9)
  - Hyperkalaemia [None]
  - Dizziness [None]
  - Acute kidney injury [None]
  - Hypophagia [None]
  - Blood creatinine increased [None]
  - Blood urea increased [None]
  - Nausea [None]
  - Dehydration [None]
  - Plasma cell myeloma [None]

NARRATIVE: CASE EVENT DATE: 20190611
